FAERS Safety Report 12745612 (Version 2)
Quarter: 2016Q4

REPORT INFORMATION
  Report Type: Report from Study
  Country: NL (occurrence: NL)
  Receive Date: 20160915
  Receipt Date: 20161020
  Transmission Date: 20170207
  Serious: Yes (Hospitalization, Other)
  Sender: FDA-Public Use
  Company Number: NL-TEVA-677826ISR

PATIENT
  Age: 73 Year
  Sex: Male

DRUGS (6)
  1. CYCLOPHOSPHAMID [Concomitant]
     Active Substance: CYCLOPHOSPHAMIDE
     Indication: CHEMOTHERAPY
     Dosage: 760 MILLIGRAM DAILY;
     Dates: start: 20160706
  2. LONQUEX 6MG OPLOSSING VOOR INJECTIE [Suspect]
     Active Substance: LIPEGFILGRASTIM
     Indication: PROPHYLAXIS
     Dosage: 6 MILLIGRAM DAILY;
     Route: 058
     Dates: start: 20160708
  3. DOXORUBICIN [Concomitant]
     Active Substance: DOXORUBICIN
     Indication: CHEMOTHERAPY
     Dosage: 50 MILLIGRAM DAILY;
     Dates: start: 20160706
  4. VINCRISTIN [Concomitant]
     Active Substance: VINCRISTINE
     Indication: CHEMOTHERAPY
     Dosage: 1 MILLIGRAM DAILY;
     Dates: start: 20160706
  5. PREDNISOLONE. [Suspect]
     Active Substance: PREDNISOLONE
     Indication: COMPUTERISED TOMOGRAM
     Dosage: 40 MILLIGRAM DAILY;
     Route: 048
     Dates: start: 20160712, end: 20160714
  6. RITUXIMAB [Concomitant]
     Active Substance: RITUXIMAB
     Indication: CHEMOTHERAPY
     Dosage: 700 MILLIGRAM DAILY;
     Dates: start: 20160707

REACTIONS (2)
  - Oedema peripheral [Recovered/Resolved]
  - Pneumonia [Unknown]

NARRATIVE: CASE EVENT DATE: 20160712
